FAERS Safety Report 5283535-1 (Version None)
Quarter: 2007Q1

REPORT INFORMATION
  Report Type: 
  Country: None (occurrence: None)
  Receive Date: 20070329
  Receipt Date: 20070329
  Transmission Date: 20070707
  Serious: Yes (Death)
  Sender: FDA-Public Use
  Company Number: None

PATIENT
  Age: 68 Year
  Sex: Female
  Weight: 87 kg

DRUGS (3)
  1. REMICADE [Suspect]
     Indication: RHEUMATOID ARTHRITIS
     Dosage: 3 MG/KG Q 8 WEEKS IV DRIP
     Route: 041
  2. METHOTREXATE [Suspect]
     Dosage: METHOTREXATE Q WEEK IM
     Route: 030
  3. LOW DOSE STEROIDS [Concomitant]

REACTIONS (9)
  - CHILLS [None]
  - CYTOMEGALOVIRUS INFECTION [None]
  - EPSTEIN-BARR VIRUS INFECTION [None]
  - FUNGAL INFECTION [None]
  - HEPATIC ENZYME ABNORMAL [None]
  - HISTOPLASMOSIS [None]
  - MALAISE [None]
  - PYREXIA [None]
  - THROMBOCYTOPENIA [None]
